FAERS Safety Report 24873387 (Version 1)
Quarter: 2025Q1

REPORT INFORMATION
  Report Type: Spontaneous
  Country: US (occurrence: US)
  Receive Date: 20250122
  Receipt Date: 20250122
  Transmission Date: 20250409
  Serious: No
  Sender: SANOFI AVENTIS
  Company Number: US-SA-2025SA018733

PATIENT
  Age: 70 Year
  Sex: Male
  Weight: 75 kg

DRUGS (13)
  1. DUPIXENT [Suspect]
     Active Substance: DUPILUMAB
     Indication: Mechanical urticaria
     Dosage: 300 MG, Q5W
     Route: 058
     Dates: start: 20230921
  2. PFIZERPEN [Concomitant]
     Active Substance: PENICILLIN G POTASSIUM
  3. SHINGRIX [Concomitant]
     Active Substance: RECOMBINANT VARICELLA ZOSTER VIRUS (VZV) GLYCOPROTEIN E
  4. VITAMIN D [Concomitant]
     Active Substance: VITAMIN D NOS
  5. BISOPROLOL FUMARATE [Concomitant]
     Active Substance: BISOPROLOL FUMARATE
  6. ASPIRIN [Concomitant]
     Active Substance: ASPIRIN
  7. TYLENOL [Concomitant]
     Active Substance: ACETAMINOPHEN
  8. FENOFIBRATE [Concomitant]
     Active Substance: FENOFIBRATE
  9. CRESTOR [Concomitant]
     Active Substance: ROSUVASTATIN CALCIUM
  10. PRILOSEC [Concomitant]
     Active Substance: OMEPRAZOLE MAGNESIUM
  11. LISINOPRIL [Concomitant]
     Active Substance: LISINOPRIL
  12. JANUVIA [Concomitant]
     Active Substance: SITAGLIPTIN PHOSPHATE
  13. JARDIANCE [Concomitant]
     Active Substance: EMPAGLIFLOZIN

REACTIONS (1)
  - Product use in unapproved indication [Unknown]

NARRATIVE: CASE EVENT DATE: 20230921
